FAERS Safety Report 16979669 (Version 1)
Quarter: 2019Q4

REPORT INFORMATION
  Report Type: Report from Study
  Country: US (occurrence: US)
  Receive Date: 20191031
  Receipt Date: 20191031
  Transmission Date: 20200122
  Serious: Yes (Other)
  Sender: FDA-Public Use
  Company Number: US-PFIZER INC-2018506791

PATIENT
  Age: 75 Year
  Sex: Male
  Weight: 61.22 kg

DRUGS (4)
  1. APIXABAN [Suspect]
     Active Substance: APIXABAN
     Indication: CEREBROVASCULAR ACCIDENT PROPHYLAXIS
     Dosage: 5 MILLIGRAM, BID
     Route: 048
     Dates: start: 20170821
  2. LORAZEPAM. [Suspect]
     Active Substance: LORAZEPAM
     Indication: ANXIETY
     Dosage: 0.5 MILLIGRAM, BID
     Route: 048
  3. ATORVASTATIN [Concomitant]
     Active Substance: ATORVASTATIN
     Dosage: UNK
     Route: 065
  4. ESCITALOPRAM [Concomitant]
     Active Substance: ESCITALOPRAM OXALATE
     Indication: ANXIETY
     Dosage: 10 MILLIGRAM, QD
     Route: 048
     Dates: start: 20191002

REACTIONS (6)
  - Sinus bradycardia [Unknown]
  - Rash [Recovered/Resolved]
  - Dehydration [Unknown]
  - Dizziness [Recovered/Resolved]
  - Epistaxis [Unknown]
  - Syncope [Unknown]

NARRATIVE: CASE EVENT DATE: 20181005
